FAERS Safety Report 12599558 (Version 2)
Quarter: 2016Q3

REPORT INFORMATION
  Report Type: Spontaneous
  Country: AU (occurrence: AU)
  Receive Date: 20160727
  Receipt Date: 20160907
  Transmission Date: 20161109
  Serious: Yes (Death, Other)
  Sender: FDA-Public Use
  Company Number: AU-MALLINCKRODT-T201603144

PATIENT
  Age: 44 Year
  Sex: Male

DRUGS (7)
  1. INOMAX [Suspect]
     Active Substance: NITRIC OXIDE
     Indication: PULMONARY HYPERTENSION
     Dosage: 2.9 PPM
     Dates: start: 20160718, end: 20160718
  2. FENTANYL. [Concomitant]
     Active Substance: FENTANYL
  3. MIDAZOLAM [Concomitant]
     Active Substance: MIDAZOLAM\MIDAZOLAM HYDROCHLORIDE
  4. OXYGEN. [Concomitant]
     Active Substance: OXYGEN
  5. DOBUTAMINE [Concomitant]
     Active Substance: DOBUTAMINE\DOBUTAMINE HYDROCHLORIDE
  6. NOREPINEPHRINE [Concomitant]
     Active Substance: NOREPINEPHRINE\NOREPINEPHRINE BITARTRATE
  7. VASOPRESSIN. [Concomitant]
     Active Substance: VASOPRESSIN

REACTIONS (5)
  - Drug ineffective for unapproved indication [Unknown]
  - Sepsis [Fatal]
  - Pneumonia [Fatal]
  - Cardiac failure [Fatal]
  - Off label use [Unknown]

NARRATIVE: CASE EVENT DATE: 20160718
